FAERS Safety Report 5024682-9 (Version None)
Quarter: 2006Q2

REPORT INFORMATION
  Report Type: 
  Country: None (occurrence: None)
  Receive Date: 20060613
  Receipt Date: 20041202
  Transmission Date: 20061013
  Serious: No
  Sender: FDA-Public Use
  Company Number: US-BRISTOL-MYERS SQUIBB COMPANY-12782751

PATIENT
  Sex: Male

DRUGS (1)
  1. NADOLOL [Suspect]
     Indication: CARDIAC MURMUR
     Route: 048

REACTIONS (1)
  - PALPITATIONS [None]
